FAERS Safety Report 7481045-4 (Version None)
Quarter: 2011Q2

REPORT INFORMATION
  Report Type: 
  Country: None (occurrence: None)
  Receive Date: 20110516
  Receipt Date: 20101018
  Transmission Date: 20111010
  Serious: Yes (Hospitalization, Other)
  Sender: FDA-Public Use
  Company Number: US-BAYER-201010138NA

PATIENT
  Age: 28 Year
  Sex: Female
  Weight: 109 kg

DRUGS (11)
  1. YASMIN [Suspect]
     Indication: UNEVALUABLE EVENT
     Dosage: UNK
     Dates: start: 20060701, end: 20070102
  2. LOVENOX [Concomitant]
  3. COUMADIN [Concomitant]
     Dates: start: 20070101, end: 20070715
  4. YASMIN [Suspect]
     Indication: HORMONE LEVEL ABNORMAL
     Dates: start: 20061001
  5. MUSCLE RELAXANT [Concomitant]
  6. MUSCLE RELAXANT [Concomitant]
  7. MOTRIN [Concomitant]
     Indication: PAIN IN EXTREMITY
  8. COUMADIN [Concomitant]
     Dates: start: 20071001
  9. VICODIN [Concomitant]
     Indication: PAIN IN EXTREMITY
     Dosage: ONE TABLET EVERY 4 HOURS AS NEEDED
  10. QUININE SULFATE [Concomitant]
     Indication: MUSCLE SPASMS
  11. QUININE SULFATE [Concomitant]

REACTIONS (8)
  - PAIN [None]
  - PULMONARY EMBOLISM [None]
  - SWELLING [None]
  - PAIN IN EXTREMITY [None]
  - MUSCLE SPASMS [None]
  - ANGIOPATHY [None]
  - DEEP VEIN THROMBOSIS [None]
  - OEDEMA PERIPHERAL [None]
